FAERS Safety Report 10986047 (Version 2)
Quarter: 2015Q2

REPORT INFORMATION
  Report Type: Report from Study
  Country: BR (occurrence: BR)
  Receive Date: 20150404
  Receipt Date: 20150426
  Transmission Date: 20150821
  Serious: Yes (Death, Other)
  Sender: FDA-Public Use
  Company Number: PHHY2015BR039978

PATIENT
  Sex: Female
  Weight: 60 kg

DRUGS (1)
  1. ACLASTA [Suspect]
     Active Substance: ZOLEDRONIC ACID
     Indication: OSTEOPOROSIS
     Dosage: 5 MG, UNK (ONCE A YEAR)
     Route: 042
     Dates: start: 201412, end: 201412

REACTIONS (2)
  - Cardiopulmonary failure [Fatal]
  - Senile dementia [Fatal]
